FAERS Safety Report 4945385-2 (Version None)
Quarter: 2006Q1

REPORT INFORMATION
  Report Type: 
  Country: None (occurrence: None)
  Receive Date: 20060315
  Receipt Date: 20060315
  Transmission Date: 20060701
  Serious: Yes (Death)
  Sender: FDA-Public Use
  Company Number: None

PATIENT
  Age: 57 Year
  Sex: Male
  Weight: 70.3 kg

DRUGS (2)
  1. AMPICILLIN IV [Suspect]
     Indication: ENDOCARDITIS
     Dosage: 1 GM IV Q6H
     Route: 042
     Dates: start: 20051027
  2. CEFIPIME IV [Suspect]
     Indication: ENDOCARDITIS
     Dosage: 1 GM IV Q24H
     Route: 042
     Dates: start: 20051027

REACTIONS (2)
  - DRUG HYPERSENSITIVITY [None]
  - RASH [None]
